FAERS Safety Report 11302425 (Version 1)
Quarter: 2015Q3

REPORT INFORMATION
  Report Type: Spontaneous
  Country: US (occurrence: None)
  Receive Date: 20150723
  Receipt Date: 20150723
  Transmission Date: 20151125
  Serious: Yes (Hospitalization)
  Sender: FDA-Public Use
  Company Number: None

PATIENT
  Age: 59 Year
  Sex: Female
  Weight: 54 kg

DRUGS (1)
  1. METFORMIN HYDROCHLORIDE. [Suspect]
     Active Substance: METFORMIN HYDROCHLORIDE
     Dates: end: 20150624

REACTIONS (5)
  - Hydronephrosis [None]
  - Pyelonephritis acute [None]
  - Hypersensitivity [None]
  - Back pain [None]
  - Uterine obstruction [None]

NARRATIVE: CASE EVENT DATE: 20150708
